FAERS Safety Report 8529077-9 (Version None)
Quarter: 2012Q3

REPORT INFORMATION
  Report Type: 
  Country: None (occurrence: None)
  Receive Date: 20120716
  Receipt Date: 20120716
  Transmission Date: 20120928
  Serious: No
  Sender: FDA-Public Use
  Company Number: None

PATIENT
  Age: 80 Year
  Sex: Female
  Weight: 79.3795 kg

DRUGS (1)
  1. WELCHOL [Suspect]
     Indication: CHOLESTEROSIS
     Dosage: 1 PACKET 8G WATOC 1 A DAY

REACTIONS (2)
  - NAUSEA [None]
  - HEADACHE [None]
